FAERS Safety Report 6017223-0 (Version None)
Quarter: 2008Q4

REPORT INFORMATION
  Report Type: 
  Country: None (occurrence: None)
  Receive Date: 20081219
  Receipt Date: 20081211
  Transmission Date: 20090506
  Serious: Yes (Hospitalization, Other)
  Sender: FDA-Public Use
  Company Number: 2008US000006

PATIENT
  Age: 82 Year
  Sex: Male

DRUGS (1)
  1. ENTEREG [Suspect]
     Dosage: 12 MG; PO
     Route: 048
     Dates: start: 20081022, end: 20081024

REACTIONS (4)
  - CORONARY ARTERY DISEASE [None]
  - MYOCARDIAL INFARCTION [None]
  - OXYGEN SATURATION DECREASED [None]
  - RESPIRATORY RATE INCREASED [None]
